FAERS Safety Report 5709570-4 (Version None)
Quarter: 2008Q2

REPORT INFORMATION
  Report Type: 
  Country: None (occurrence: None)
  Receive Date: 20080418
  Receipt Date: 20080416
  Transmission Date: 20081010
  Serious: Yes (Other)
  Sender: FDA-Public Use
  Company Number: FR-ALLERGAN-0802324US

PATIENT
  Sex: Female
  Weight: 58 kg

DRUGS (5)
  1. VISTABEL [Suspect]
     Indication: SKIN WRINKLING
     Dosage: 39 UNITS, SINGLE
     Route: 030
     Dates: start: 20080216, end: 20080216
  2. SELECTOL [Concomitant]
  3. COVERSYL [Concomitant]
  4. PRAVASTATIN SODIUM [Concomitant]
  5. PIROXICAM [Concomitant]

REACTIONS (4)
  - EYELID PTOSIS [None]
  - HEADACHE [None]
  - PHOTOPHOBIA [None]
  - VISUAL DISTURBANCE [None]
